APPROVED DRUG PRODUCT: FOSINOPRIL SODIUM
Active Ingredient: FOSINOPRIL SODIUM
Strength: 20MG
Dosage Form/Route: TABLET;ORAL
Application: A077531 | Product #002
Applicant: WATSON LABORATORIES INC
Approved: Aug 31, 2006 | RLD: No | RS: No | Type: DISCN